FAERS Safety Report 25427227 (Version 1)
Quarter: 2025Q2

REPORT INFORMATION
  Report Type: Spontaneous
  Country: US (occurrence: US)
  Receive Date: 20250612
  Receipt Date: 20250612
  Transmission Date: 20250717
  Serious: No
  Sender: TEVA
  Company Number: US-TEVA-VS-3340635

PATIENT
  Age: 67 Year

DRUGS (2)
  1. AJOVY [Suspect]
     Active Substance: FREMANEZUMAB-VFRM
     Indication: Product used for unknown indication
     Route: 065
  2. AJOVY [Suspect]
     Active Substance: FREMANEZUMAB-VFRM

REACTIONS (4)
  - Dizziness [Unknown]
  - Product use issue [Unknown]
  - Pain [Unknown]
  - Hypertension [Unknown]

NARRATIVE: CASE EVENT DATE: 20250606
